FAERS Safety Report 7691725-3 (Version None)
Quarter: 2011Q3

REPORT INFORMATION
  Report Type: 
  Country: None (occurrence: None)
  Receive Date: 20110818
  Receipt Date: 20110811
  Transmission Date: 20111222
  Serious: Yes (Other)
  Sender: FDA-Public Use
  Company Number: US-GLAXOSMITHKLINE-A0940531A

PATIENT
  Age: 71 Year
  Sex: Female

DRUGS (5)
  1. SINGULAIR [Concomitant]
  2. ADVAIR DISKUS 100/50 [Suspect]
     Indication: ASTHMA
     Dosage: 1PUFF TWICE PER DAY
     Route: 055
     Dates: start: 20110809, end: 20110810
  3. FLONASE [Concomitant]
  4. SYMBICORT [Concomitant]
  5. ALLEGRA [Concomitant]

REACTIONS (6)
  - COUGH [None]
  - MALAISE [None]
  - ASTHMA [None]
  - CHOKING [None]
  - HYPOXIA [None]
  - PRODUCT QUALITY ISSUE [None]
